FAERS Safety Report 5127318-1 (Version None)
Quarter: 2006Q4

REPORT INFORMATION
  Report Type: 
  Country: None (occurrence: None)
  Receive Date: 20061010
  Receipt Date: 20060922
  Transmission Date: 20070319
  Serious: Yes (Other)
  Sender: FDA-Public Use
  Company Number: CHNY2006BR02125

PATIENT
  Age: 71 Year
  Sex: Male

DRUGS (1)
  1. TRIMEDAL (NCH)(VITAMIN C, TROXERUTIN, ACETAMINOPHEN (PARACETAMOL), PHE [Suspect]
     Indication: INFLUENZA
     Dosage: 1 DF, Q8H, ORAL
     Route: 048
     Dates: start: 20060710, end: 20060713

REACTIONS (1)
  - HERPES VIRUS INFECTION [None]
